FAERS Safety Report 23378909 (Version 1)
Quarter: 2024Q1

REPORT INFORMATION
  Report Type: Spontaneous
  Country: US (occurrence: None)
  Receive Date: 20240107
  Receipt Date: 20240107
  Transmission Date: 20240410
  Serious: Yes (Other)
  Sender: FDA-Public Use
  Company Number: None

PATIENT
  Age: 70 Year
  Sex: Female
  Weight: 58.97 kg

DRUGS (6)
  1. LIDOCAINE [Suspect]
     Active Substance: LIDOCAINE
  2. LYRICA [Concomitant]
     Active Substance: PREGABALIN
  3. CYMBALTA [Concomitant]
     Active Substance: DULOXETINE HYDROCHLORIDE
  4. OXYCODONE HYDROCHLORIDE [Concomitant]
     Active Substance: OXYCODONE HYDROCHLORIDE
  5. IBUPROFEN [Concomitant]
     Active Substance: IBUPROFEN
  6. XTAMPZA ER [Concomitant]
     Active Substance: OXYCODONE

REACTIONS (9)
  - Procedural pain [None]
  - Mouth swelling [None]
  - Lip swelling [None]
  - Swelling face [None]
  - Pharyngeal swelling [None]
  - Fungal infection [None]
  - Drug ineffective [None]
  - Oral discomfort [None]
  - Economic problem [None]

NARRATIVE: CASE EVENT DATE: 20210625
